FAERS Safety Report 8343132-8 (Version None)
Quarter: 2012Q2

REPORT INFORMATION
  Report Type: 
  Country: None (occurrence: None)
  Receive Date: 20120504
  Receipt Date: 20120504
  Transmission Date: 20120825
  Serious: No
  Sender: FDA-Public Use
  Company Number: None

PATIENT
  Age: 51 Year
  Sex: Female
  Weight: 55.7924 kg

DRUGS (1)
  1. ESCITALOPRAM [Suspect]
     Indication: ANXIETY
     Dosage: 10MG ONCE DAILY ORAL  EARLY 2012 X 1 MONTH
     Route: 048

REACTIONS (6)
  - INSOMNIA [None]
  - FEELING ABNORMAL [None]
  - MOOD ALTERED [None]
  - ANXIETY [None]
  - DRUG INTOLERANCE [None]
  - WEIGHT INCREASED [None]
